FAERS Safety Report 11994334 (Version 1)
Quarter: 2016Q1

REPORT INFORMATION
  Report Type: Spontaneous
  Country: US (occurrence: US)
  Receive Date: 20160203
  Receipt Date: 20160203
  Transmission Date: 20160526
  Serious: No
  Sender: FDA-Public Use
  Company Number: US-UCBSA-2015026944

PATIENT
  Age: 23 Year
  Sex: Female

DRUGS (2)
  1. MARIJUANA [Concomitant]
     Active Substance: CANNABIS SATIVA SUBSP. INDICA TOP
     Indication: EPILEPSY
     Dosage: UNKNOWN DOSE
  2. KEPPRA [Suspect]
     Active Substance: LEVETIRACETAM
     Indication: EPILEPSY
     Dosage: UNKNOWN DOSE

REACTIONS (3)
  - Adverse drug reaction [Unknown]
  - Personality change [Unknown]
  - Drug ineffective [Unknown]
